FAERS Safety Report 4928468-2 (Version None)
Quarter: 2006Q1

REPORT INFORMATION
  Report Type: 
  Country: None (occurrence: None)
  Receive Date: 20060127
  Receipt Date: 20051117
  Transmission Date: 20060701
  Serious: Yes (Other)
  Sender: FDA-Public Use
  Company Number: 2005156636

PATIENT
  Age: 32 Year
  Sex: Female

DRUGS (2)
  1. LYRICA [Suspect]
     Indication: CYSTITIS INTERSTITIAL
     Dosage: 50 MG (25 MG,2 IN 1 D),ORAL
     Route: 048
  2. LYRICA [Suspect]
     Indication: PELVIC PAIN
     Dosage: 50 MG (25 MG,2 IN 1 D),ORAL
     Route: 048

REACTIONS (1)
  - HALLUCINATION, VISUAL [None]
